FAERS Safety Report 17826827 (Version 1)
Quarter: 2020Q2

REPORT INFORMATION
  Report Type: Spontaneous
  Country: US (occurrence: US)
  Receive Date: 20200527
  Receipt Date: 20200527
  Transmission Date: 20200714
  Serious: Yes (Hospitalization, Other)
  Sender: FDA-Public Use
  Company Number: US-EMCURE PHARMACEUTICALS LTD-2020-EPL-000641

PATIENT
  Age: 64 Year
  Sex: Female

DRUGS (4)
  1. IRINOTECAN HYDROCHLORIDE. [Suspect]
     Active Substance: IRINOTECAN HYDROCHLORIDE
     Indication: PANCREATIC CARCINOMA METASTATIC
     Dosage: UNK, FOLFIRINOX 36 HOURS EARLIER
  2. OXALIPLATIN. [Suspect]
     Active Substance: OXALIPLATIN
     Indication: PANCREATIC CARCINOMA METASTATIC
     Dosage: UNK, FOLFOX FOR THE FIRST TIME 7 DAYS EARLIER AND FOLFIRINOX 36 HOURS EARLIER
  3. FLUOROURACIL. [Suspect]
     Active Substance: FLUOROURACIL
     Indication: PANCREATIC CARCINOMA METASTATIC
     Dosage: UNK, FOLFOX FOR THE FIRST TIME 7 DAYS EARLIER AND FOLFIRINOX 36 HOURS EARLIER
  4. FOLINIC ACID [Suspect]
     Active Substance: LEUCOVORIN
     Indication: PANCREATIC CARCINOMA METASTATIC
     Dosage: UNK, FOLFOX FOR THE FIRST TIME 7 DAYS EARLIER AND FOLFIRINOX 36 HOURS EARLIER

REACTIONS (2)
  - Inappropriate antidiuretic hormone secretion [Recovered/Resolved]
  - Off label use [Unknown]
